FAERS Safety Report 18048170 (Version 1)
Quarter: 2020Q3

REPORT INFORMATION
  Report Type: Spontaneous
  Country: US (occurrence: US)
  Receive Date: 20200720
  Receipt Date: 20200720
  Transmission Date: 20201103
  Serious: No
  Sender: FDA-Public Use
  Company Number: None

PATIENT
  Age: 49 Year
  Sex: Female
  Weight: 90 kg

DRUGS (1)
  1. ASSURED INSTANT HAND SANITIZER [Suspect]
     Active Substance: ALCOHOL
     Indication: INFECTION PROPHYLAXIS
     Dosage: ?          QUANTITY:2 TABLESPOON(S);?
     Route: 061
     Dates: start: 20200310, end: 20200718

REACTIONS (8)
  - Nausea [None]
  - Recalled product administered [None]
  - Application site rash [None]
  - Pain [None]
  - Exposure during pregnancy [None]
  - Maternal drugs affecting foetus [None]
  - Headache [None]
  - Diplopia [None]

NARRATIVE: CASE EVENT DATE: 20200601
